FAERS Safety Report 8295612-1 (Version None)
Quarter: 2012Q2

REPORT INFORMATION
  Report Type: 
  Country: None (occurrence: None)
  Receive Date: 20120413
  Receipt Date: 20120413
  Transmission Date: 20120825
  Serious: No
  Sender: FDA-Public Use
  Company Number: None

PATIENT
  Age: 30 Year
  Sex: Female

DRUGS (2)
  1. BACTRIM [Suspect]
     Dates: start: 20080101, end: 20080101
  2. ALLI (ORLISTAT) [Suspect]
     Dates: start: 20070715, end: 20080201

REACTIONS (8)
  - SPLENOMEGALY [None]
  - HEPATIC STEATOSIS [None]
  - HEPATIC NECROSIS [None]
  - HEPATIC FIBROSIS [None]
  - HEPATITIS ACUTE [None]
  - LIVER INJURY [None]
  - ASCITES [None]
  - INTERNATIONAL NORMALISED RATIO INCREASED [None]
